FAERS Safety Report 6570128-9 (Version None)
Quarter: 2010Q1

REPORT INFORMATION
  Report Type: 
  Country: None (occurrence: None)
  Receive Date: 20100202
  Receipt Date: 20100202
  Transmission Date: 20100710
  Serious: Yes (Other)
  Sender: FDA-Public Use
  Company Number: None

PATIENT
  Age: 32 Year
  Sex: Female
  Weight: 46.2669 kg

DRUGS (2)
  1. OCELLA 3 MG/0.03 MG BARR LABORATORIES [Suspect]
     Indication: CONTRACEPTION
     Dosage: 1 PILL DAILY PO
     Route: 048
     Dates: start: 20081210, end: 20090130
  2. OCELLA 3 MG/0.03 MG BARR LABORATORIES [Suspect]
     Indication: HAEMORRHAGE
     Dosage: 1 PILL DAILY PO
     Route: 048
     Dates: start: 20081210, end: 20090130

REACTIONS (2)
  - EMOTIONAL DISORDER [None]
  - PRODUCT SUBSTITUTION ISSUE [None]
